FAERS Safety Report 8067012-0 (Version None)
Quarter: 2012Q1

REPORT INFORMATION
  Report Type: 
  Country: None (occurrence: None)
  Receive Date: 20120124
  Receipt Date: 20120112
  Transmission Date: 20120608
  Serious: Yes (Hospitalization)
  Sender: FDA-Public Use
  Company Number: US-MERCK-1106USA01028

PATIENT
  Age: 62 Year
  Sex: Female
  Weight: 56 kg

DRUGS (8)
  1. FOSAMAX [Suspect]
     Route: 048
     Dates: start: 20001229, end: 20080601
  2. REQUIP [Concomitant]
     Indication: PARKINSON'S DISEASE
     Route: 065
     Dates: start: 19960101
  3. FOSAMAX [Suspect]
     Indication: OSTEOPENIA
     Route: 048
     Dates: start: 19970609
  4. FOSAMAX [Suspect]
     Route: 048
     Dates: start: 20080625, end: 20100101
  5. VITAMINS (UNSPECIFIED) [Concomitant]
     Route: 065
     Dates: start: 19960101
  6. FOSAMAX [Suspect]
     Route: 048
     Dates: end: 20010602
  7. CALCIUM (UNSPECIFIED) AND VITAMIN D (UNSPECIFIED) [Concomitant]
     Route: 065
     Dates: start: 19960101
  8. STALEVO 100 [Concomitant]
     Indication: PARKINSON'S DISEASE
     Route: 065
     Dates: start: 19960101

REACTIONS (30)
  - OSTEOARTHRITIS [None]
  - LOW TURNOVER OSTEOPATHY [None]
  - OSTEOMYELITIS [None]
  - STRESS FRACTURE [None]
  - SPINAL OSTEOARTHRITIS [None]
  - ROAD TRAFFIC ACCIDENT [None]
  - BRONCHITIS [None]
  - DRUG HYPERSENSITIVITY [None]
  - PARKINSONISM [None]
  - VULVAL ULCERATION [None]
  - DENTAL CARIES [None]
  - ALLERGIC SINUSITIS [None]
  - ALLERGY TO VACCINE [None]
  - RASH GENERALISED [None]
  - TOOTH FRACTURE [None]
  - ANIMAL BITE [None]
  - HYPERSENSITIVITY [None]
  - TOOTH ABSCESS [None]
  - PARKINSON'S DISEASE [None]
  - ORAL DISORDER [None]
  - CERVICOBRACHIAL SYNDROME [None]
  - FEMUR FRACTURE [None]
  - SOFT TISSUE INFLAMMATION [None]
  - ARTHRITIS [None]
  - RESTLESS LEGS SYNDROME [None]
  - ATROPHIC VULVOVAGINITIS [None]
  - FOOT FRACTURE [None]
  - CONTUSION [None]
  - TENDONITIS [None]
  - INTERVERTEBRAL DISC PROTRUSION [None]
